FAERS Safety Report 10045082 (Version 2)
Quarter: 2014Q2

REPORT INFORMATION
  Report Type: Spontaneous
  Country: US (occurrence: US)
  Receive Date: 20140328
  Receipt Date: 20140512
  Transmission Date: 20141212
  Serious: No
  Sender: FDA-Public Use
  Company Number: US-009507513-1403USA008493

PATIENT
  Age: 65 Year
  Sex: Female
  Weight: 87.53 kg

DRUGS (11)
  1. OXYTROL FOR WOMEN [Suspect]
     Indication: HYPERTONIC BLADDER
     Dosage: UNK, UNKNOWN
     Route: 062
     Dates: start: 201403, end: 201403
  2. LOSARTAN POTASSIUM [Concomitant]
     Indication: HYPERTENSION
     Dosage: UNK, UNKNOWN
  3. AMLODIPINE [Concomitant]
     Indication: HYPERTENSION
     Dosage: UNK, UNKNOWN
  4. POTASSIUM (UNSPECIFIED) [Concomitant]
     Indication: HYPERTENSION
     Dosage: UNK, UNKNOWN
  5. TRAZODONE HYDROCHLORIDE [Concomitant]
     Indication: BIPOLAR DISORDER
     Dosage: UNK, UNKNOWN
  6. GABAPENTIN [Concomitant]
     Indication: SCIATICA
     Dosage: UNK, UNKNOWN
  7. GABAPENTIN [Concomitant]
     Indication: SPINAL COLUMN STENOSIS
  8. BACLOFEN [Concomitant]
     Indication: SCIATICA
     Dosage: UNK, UNKNOWN
  9. BACLOFEN [Concomitant]
     Indication: SPINAL COLUMN STENOSIS
  10. ALEVE [Concomitant]
     Indication: SCIATICA
     Dosage: UNK, UNKNOWN
  11. ALEVE [Concomitant]
     Indication: SPINAL COLUMN STENOSIS

REACTIONS (3)
  - Application site haemorrhage [Recovered/Resolved]
  - Application site pain [Recovered/Resolved]
  - Application site scab [Recovered/Resolved]
